FAERS Safety Report 8884645 (Version 5)
Quarter: 2013Q1

REPORT INFORMATION
  Report Type: Spontaneous
  Country: US (occurrence: US)
  Receive Date: 20121102
  Receipt Date: 20130117
  Transmission Date: 20140127
  Serious: Yes (Hospitalization, Disabling, Other)
  Sender: FDA-Public Use
  Company Number: US-009507513-1210USA011089

PATIENT
  Sex: 0

DRUGS (7)
  1. FOSAMAX [Suspect]
     Indication: OSTEOPOROSIS
     Dosage: 10 MG, UNK
     Route: 048
     Dates: start: 1997
  2. FOSAMAX [Suspect]
     Indication: OSTEOPENIA
     Dosage: 10 MG, UNK
     Route: 048
     Dates: end: 201010
  3. FOSAMAX [Suspect]
     Dosage: 70 MG, UNK
     Route: 048
     Dates: start: 1997
  4. FOSAMAX [Suspect]
     Dosage: 70 MG, UNK
     Route: 048
     Dates: end: 201010
  5. FOSAMAX PLUS D [Suspect]
     Indication: OSTEOPOROSIS
     Dosage: 70 MG, UNK
     Route: 048
     Dates: start: 2003
  6. FOSAMAX PLUS D [Suspect]
     Dosage: 70 MG/2800 IU, QW
     Route: 048
     Dates: start: 20061204, end: 2010
  7. ACTONEL [Suspect]
     Indication: OSTEOPOROSIS
     Route: 048

REACTIONS (37)
  - Femur fracture [Unknown]
  - Femur fracture [Unknown]
  - Hip fracture [Unknown]
  - Pelvic fracture [Unknown]
  - Low turnover osteopathy [Not Recovered/Not Resolved]
  - Radius fracture [Unknown]
  - Fall [Recovering/Resolving]
  - Open reduction of fracture [Unknown]
  - Closed fracture manipulation [Unknown]
  - Closed fracture manipulation [Unknown]
  - Packed red blood cell transfusion [Unknown]
  - Iron deficiency anaemia [Recovering/Resolving]
  - Fall [Unknown]
  - Constipation [Recovered/Resolved]
  - Fracture displacement [Unknown]
  - Hyperthyroidism [Unknown]
  - Joint stiffness [Unknown]
  - Hyperlipidaemia [Unknown]
  - Joint instability [Unknown]
  - Hyperthyroidism [Unknown]
  - Radiotherapy to thyroid [Unknown]
  - Lipoma [Unknown]
  - Lipoma excision [Unknown]
  - Sciatica [Not Recovered/Not Resolved]
  - Intervertebral disc degeneration [Not Recovered/Not Resolved]
  - Hypothyroidism [Unknown]
  - Drug eruption [Unknown]
  - Coronary artery disease [Unknown]
  - Hypertension [Unknown]
  - Hypoaesthesia [Unknown]
  - Paraesthesia [Unknown]
  - Back pain [Not Recovered/Not Resolved]
  - Arthralgia [Unknown]
  - Arthralgia [Unknown]
  - Arthralgia [Unknown]
  - Drug ineffective [Unknown]
  - Gastrooesophageal reflux disease [Unknown]
